FAERS Safety Report 10730269 (Version 1)
Quarter: 2015Q1

REPORT INFORMATION
  Report Type: Spontaneous
  Country: US (occurrence: None)
  Receive Date: 20150121
  Receipt Date: 20150121
  Transmission Date: 20150721
  Serious: Yes (Life-Threatening, Hospitalization)
  Sender: FDA-Public Use
  Company Number: None

PATIENT
  Age: 70 Year
  Sex: Male
  Weight: 81.65 kg

DRUGS (1)
  1. XARELTO [Suspect]
     Active Substance: RIVAROXABAN
     Indication: PULMONARY THROMBOSIS
     Dosage: ONE TABLET ONCE DAILY TAKEN BY MOUTH
     Route: 048

REACTIONS (3)
  - Drug ineffective [None]
  - Cerebrovascular accident [None]
  - Contraindicated drug administered [None]

NARRATIVE: CASE EVENT DATE: 20141122
